FAERS Safety Report 13708526 (Version 1)
Quarter: 2017Q2

REPORT INFORMATION
  Report Type: Spontaneous
  Country: US (occurrence: US)
  Receive Date: 20170630
  Receipt Date: 20170630
  Transmission Date: 20170830
  Serious: No
  Sender: FDA-Public Use
  Company Number: US-SUNOVION-2017SUN002748

PATIENT
  Sex: Female
  Weight: 81.63 kg

DRUGS (2)
  1. BROVANA [Suspect]
     Active Substance: ARFORMOTEROL TARTRATE
     Indication: ASTHMA
     Dosage: BROVANA (ARFORMOTEROL TARTRATE) 15MCG/2ML BID VIA NEBULIZER
     Route: 055
     Dates: start: 20170526
  2. ALBUTEROL SULFATE. [Concomitant]
     Active Substance: ALBUTEROL SULFATE
     Dosage: ALBUTEROL SULFATE PRN VIA INHALATION
     Route: 055

REACTIONS (1)
  - Drug ineffective [Unknown]
